FAERS Safety Report 22319049 (Version 2)
Quarter: 2023Q2

REPORT INFORMATION
  Report Type: Spontaneous
  Country: RO (occurrence: RO)
  Receive Date: 20230515
  Receipt Date: 20230518
  Transmission Date: 20230722
  Serious: Yes (Other)
  Sender: FDA-Public Use
  Company Number: RO-CHEPLA-2023005554

PATIENT
  Age: 28 Year
  Sex: Male

DRUGS (4)
  1. IDARUBICIN HYDROCHLORIDE [Suspect]
     Active Substance: IDARUBICIN HYDROCHLORIDE
     Indication: Prophylaxis
     Dosage: 12 MG/M2, ON DAYS 2, 4, 6
  2. TRETINOIN [Suspect]
     Active Substance: TRETINOIN
     Indication: Acute promyelocytic leukaemia
     Dosage: DIVIDED IN TWO DAILY DOSES
  3. DEXAMETHASONE [Suspect]
     Active Substance: DEXAMETHASONE
     Indication: Prophylaxis
     Dosage: BID
  4. DEXAMETHASONE [Suspect]
     Active Substance: DEXAMETHASONE
     Dosage: BID

REACTIONS (5)
  - Myocarditis [Recovered/Resolved]
  - Differentiation syndrome [Recovered/Resolved]
  - Weight increased [Unknown]
  - COVID-19 [Recovered/Resolved]
  - Off label use [Unknown]
